FAERS Safety Report 6456587-0 (Version None)
Quarter: 2009Q4

REPORT INFORMATION
  Report Type: 
  Country: None (occurrence: None)
  Receive Date: 20091125
  Receipt Date: 20091116
  Transmission Date: 20100525
  Serious: Yes (Death, Hospitalization, Other)
  Sender: FDA-Public Use
  Company Number: US-NOVOPROD-300446

PATIENT
  Sex: Male
  Weight: 136.1 kg

DRUGS (15)
  1. NOVOLOG [Suspect]
     Indication: DIABETES MELLITUS
     Dosage: 15 U, TID
     Route: 058
     Dates: start: 20070101, end: 20091019
  2. FENTANYL [Suspect]
     Indication: NEUROPATHY PERIPHERAL
     Dosage: 50 UG, QD (TO RIGHT CHEST)
     Route: 062
     Dates: start: 20091017, end: 20091020
  3. FENTANYL [Suspect]
     Indication: PAIN IN EXTREMITY
  4. METOPROLOL [Suspect]
     Indication: BLOOD PRESSURE
     Dosage: 50 MG, BID
     Route: 048
     Dates: start: 20090801, end: 20091019
  5. HYDROCODONE BITARTRATE AND ACETAMINOPHEN [Suspect]
     Indication: PAIN
     Dosage: 10/325 MG, QD
     Route: 048
     Dates: start: 20091017, end: 20091020
  6. AMBIEN [Suspect]
     Indication: INSOMNIA
     Dosage: 10 MG, PRN
     Route: 048
     Dates: start: 20090101, end: 20091020
  7. BETAMETHASONE [Suspect]
     Indication: NEUROPATHY PERIPHERAL
     Dosage: 50 MG, PRN
     Route: 061
     Dates: start: 20091016, end: 20091016
  8. AMMONIUM LACTATE [Suspect]
     Indication: NEUROPATHY PERIPHERAL
     Dosage: APPLY TO SKIN BID
     Route: 061
     Dates: start: 20091019, end: 20091019
  9. LANTUS [Suspect]
     Indication: DIABETES MELLITUS
     Dosage: 25 U, QD
     Route: 058
     Dates: start: 20070101, end: 20091019
  10. WARFARIN SODIUM [Suspect]
     Indication: DRUG USE FOR UNKNOWN INDICATION
     Dosage: 6MG ONE DAY, THEN 7.5MG THE NEXT DAY (ALTERNATING DAYS)
     Route: 048
     Dates: start: 20060101, end: 20091019
  11. UROXATRAL [Suspect]
     Indication: MICTURITION DISORDER
     Dosage: 10 MG, QD
     Route: 048
     Dates: start: 20090301, end: 20091019
  12. OXYCONTIN [Suspect]
     Indication: PAIN
     Dosage: 20-40MG BID TO TID, PRN
     Route: 048
     Dates: start: 20030101, end: 20091016
  13. DIPROLENE [Suspect]
     Indication: DRUG USE FOR UNKNOWN INDICATION
     Dosage: UNK
     Dates: end: 20091019
  14. CYMBALTA [Suspect]
     Indication: RELAXATION THERAPY
     Dosage: 60 MG, QD
     Dates: end: 20091019
  15. HUMALOG [Concomitant]
     Indication: DIABETES MELLITUS
     Route: 058

REACTIONS (11)
  - ABNORMAL BEHAVIOUR [None]
  - BRAIN DEATH [None]
  - COAGULOPATHY [None]
  - COLD SWEAT [None]
  - FALL [None]
  - HAEMORRHAGIC STROKE [None]
  - HYPERTENSION [None]
  - INSOMNIA [None]
  - MALAISE [None]
  - RESPIRATORY ARREST [None]
  - RUPTURED CEREBRAL ANEURYSM [None]
